FAERS Safety Report 13452042 (Version 3)
Quarter: 2017Q2

REPORT INFORMATION
  Report Type: Report from Study
  Country: DE (occurrence: DE)
  Receive Date: 20170418
  Receipt Date: 20170523
  Transmission Date: 20170830
  Serious: No
  Sender: FDA-Public Use
  Company Number: DE-CELGENEUS-DEU-20170401150

PATIENT
  Sex: Female
  Weight: 67 kg

DRUGS (4)
  1. MEDI4736 (DURVALUMAB) [Suspect]
     Active Substance: DURVALUMAB
     Indication: BREAST CANCER
     Dosage: 1500 MILLIGRAM
     Route: 041
     Dates: start: 20161107
  2. CYCLOPHOSPHAMIDE. [Suspect]
     Active Substance: CYCLOPHOSPHAMIDE
     Indication: BREAST CANCER
     Dosage: 1068 MILLIGRAM
     Route: 041
     Dates: start: 20170213
  3. ABRAXANE [Suspect]
     Active Substance: PACLITAXEL
     Indication: BREAST CANCER
     Route: 041
  4. EPIRUBICIN [Suspect]
     Active Substance: EPIRUBICIN
     Indication: BREAST CANCER
     Dosage: 160 MILLIGRAM
     Route: 041
     Dates: start: 20170213

REACTIONS (1)
  - Infusion related reaction [Recovered/Resolved]

NARRATIVE: CASE EVENT DATE: 20170214
